FAERS Safety Report 8828104 (Version 1)
Quarter: 2012Q4

REPORT INFORMATION
  Report Type: 
  Country: JP (occurrence: JP)
  Receive Date: 20121008
  Receipt Date: 20121008
  Transmission Date: 20130627
  Serious: Yes (Hospitalization, Other)
  Sender: FDA-Public Use
  Company Number: PHHY2012JP087533

PATIENT
  Age: 80 Year
  Sex: Female

DRUGS (4)
  1. RIVASTIGMINE [Suspect]
     Indication: DEMENTIA ALZHEIMER^S TYPE
     Dosage: 4.5 mg, once a day
     Route: 062
     Dates: start: 20120626, end: 20120627
  2. GRAMALIL [Concomitant]
     Dates: start: 201202
  3. BENZALIN [Concomitant]
     Dates: start: 201202
  4. SEROQUEL [Concomitant]
     Dates: start: 201202

REACTIONS (3)
  - Sedation [Recovered/Resolved]
  - Aphagia [Unknown]
  - Aggression [Unknown]
